FAERS Safety Report 9310692 (Version 11)
Quarter: 2016Q3

REPORT INFORMATION
  Report Type: Report from Study
  Country: BR (occurrence: BR)
  Receive Date: 20130527
  Receipt Date: 20160824
  Transmission Date: 20161109
  Serious: Yes (Hospitalization, Disabling, Other)
  Sender: FDA-Public Use
  Company Number: BR-ROCHE-1219100

PATIENT
  Age: 73 Year
  Sex: Female
  Weight: 72 kg

DRUGS (20)
  1. PARACETAMOL [Concomitant]
     Active Substance: ACETAMINOPHEN
  2. DOMPERIDONE [Concomitant]
     Active Substance: DOMPERIDONE
  3. ACTEMRA [Suspect]
     Active Substance: TOCILIZUMAB
     Indication: RHEUMATOID ARTHRITIS
     Dosage: LAST DOSE PRIOR TO SAE:15/APR/2013?LATEST INFUSION ON 05/AUG/2014
     Route: 042
     Dates: start: 20101020, end: 20121002
  4. ACTEMRA [Suspect]
     Active Substance: TOCILIZUMAB
     Dosage: LAST DOSE PRIOR TO SAE:15/APR/2013
     Route: 042
     Dates: start: 201302
  5. AAS [Concomitant]
     Active Substance: ASPIRIN
     Indication: ANTICOAGULANT THERAPY
     Route: 065
  6. LEFLUNOMIDE. [Concomitant]
     Active Substance: LEFLUNOMIDE
  7. DRAMIN B6 [Concomitant]
     Indication: LABYRINTHITIS
  8. ARAVA [Concomitant]
     Active Substance: LEFLUNOMIDE
     Indication: RHEUMATOID ARTHRITIS
  9. DESONIDE. [Concomitant]
     Active Substance: DESONIDE
  10. REUQUINOL [Concomitant]
     Active Substance: HYDROXYCHLOROQUINE SULFATE
     Indication: RHEUMATOID ARTHRITIS
  11. MOTILIUM [Concomitant]
     Active Substance: DOMPERIDONE
  12. GINKGO BILOBA [Concomitant]
     Active Substance: GINKGO
     Indication: LABYRINTHITIS
  13. TANDRILAX [Concomitant]
     Active Substance: ACETAMINOPHEN\CAFFEINE\CARISOPRODOL\DICLOFENAC SODIUM
  14. REVANGE (ACETAMINOPHEN/TRAMADOL HYDROCHLORIDE) [Concomitant]
  15. ENALAPRIL [Concomitant]
     Active Substance: ENALAPRIL
     Indication: HYPERTENSION
     Route: 065
  16. PURAN [Concomitant]
     Active Substance: LEVOTHYROXINE SODIUM
     Indication: THYROID DISORDER
     Route: 065
  17. PREDNISONE. [Concomitant]
     Active Substance: PREDNISONE
     Indication: RHEUMATOID ARTHRITIS
  18. TYLEX (BRAZIL) [Concomitant]
     Active Substance: ACETAMINOPHEN\CODEINE PHOSPHATE
  19. OMEGA 3 [Concomitant]
     Active Substance: OMEGA-3 FATTY ACIDS
  20. ACTEMRA [Suspect]
     Active Substance: TOCILIZUMAB
     Dosage: MOST RECENT DOSE: 01/FEB/2016
     Route: 042
     Dates: start: 201305

REACTIONS (27)
  - Finger deformity [Unknown]
  - Bedridden [Not Recovered/Not Resolved]
  - Mass [Recovered/Resolved]
  - Intervertebral disc protrusion [Recovered/Resolved]
  - Pain [Unknown]
  - Pain [Not Recovered/Not Resolved]
  - Hand deformity [Recovered/Resolved]
  - Fatigue [Recovering/Resolving]
  - Dizziness [Unknown]
  - Abasia [Recovering/Resolving]
  - Rheumatoid arthritis [Recovered/Resolved]
  - Abdominal pain upper [Not Recovered/Not Resolved]
  - Cataract [Recovered/Resolved]
  - Thrombosis [Recovered/Resolved]
  - Back pain [Not Recovered/Not Resolved]
  - Nausea [Unknown]
  - Limb injury [Unknown]
  - Deafness unilateral [Not Recovered/Not Resolved]
  - Pyrexia [Unknown]
  - Rheumatoid arthritis [Not Recovered/Not Resolved]
  - Arthropathy [Unknown]
  - Bone loss [Recovered/Resolved]
  - Spinal disorder [Unknown]
  - Macule [Not Recovered/Not Resolved]
  - Arthralgia [Not Recovered/Not Resolved]
  - Tendon rupture [Not Recovered/Not Resolved]
  - Thyroid disorder [Unknown]

NARRATIVE: CASE EVENT DATE: 20150127
